FAERS Safety Report 20452827 (Version 3)
Quarter: 2022Q1

REPORT INFORMATION
  Report Type: Spontaneous
  Country: JP (occurrence: JP)
  Receive Date: 20220210
  Receipt Date: 20220308
  Transmission Date: 20220423
  Serious: Yes (Other)
  Sender: FDA-Public Use
  Company Number: JP-TAKEDA-2021TJP109042

PATIENT
  Sex: Female

DRUGS (2)
  1. ZEJULA [Suspect]
     Active Substance: NIRAPARIB
     Indication: Ovarian cancer
     Dosage: 200 MG
     Route: 048
     Dates: start: 20210902
  2. ZEJULA [Suspect]
     Active Substance: NIRAPARIB
     Dosage: 200 MG
     Route: 048
     Dates: end: 20220131

REACTIONS (4)
  - Metastases to lymph nodes [Not Recovered/Not Resolved]
  - Ovarian cancer [Unknown]
  - Disease progression [Unknown]
  - Platelet count decreased [Recovering/Resolving]
